FAERS Safety Report 24089481 (Version 1)
Quarter: 2024Q3

REPORT INFORMATION
  Report Type: Spontaneous
  Country: DE (occurrence: DE)
  Receive Date: 20240715
  Receipt Date: 20240715
  Transmission Date: 20241017
  Serious: No
  Sender: PIERRE FABRE MEDICAMENT
  Company Number: DE-002147023-NVSC2021DE192615

PATIENT
  Age: 47 Month
  Sex: Male

DRUGS (3)
  1. PROPRANOLOL [Suspect]
     Active Substance: PROPRANOLOL HYDROCHLORIDE
     Indication: Hormone therapy
     Dosage: (3-6 MG/KG/DAY), QD (1/DAY)
     Route: 065
  2. PROPRANOLOL [Suspect]
     Active Substance: PROPRANOLOL HYDROCHLORIDE
     Indication: Off label use
  3. TRAMETINIB [Suspect]
     Active Substance: TRAMETINIB
     Indication: Left ventricular hypertrophy
     Dosage: 0.02 MG/KG, QD (1/DAY)
     Route: 065

REACTIONS (4)
  - Nail disorder [Unknown]
  - Off label use [Unknown]
  - Product use in unapproved indication [Unknown]
  - Product administered to patient of inappropriate age [Unknown]
